FAERS Safety Report 9781907 (Version 2)
Quarter: 2014Q1

REPORT INFORMATION
  Report Type: Spontaneous
  Country: US (occurrence: US)
  Receive Date: 20131225
  Receipt Date: 20140210
  Transmission Date: 20141002
  Serious: No
  Sender: FDA-Public Use
  Company Number: US-009507513-1312USA009945

PATIENT
  Age: 50 Year
  Sex: Female
  Weight: 113.38 kg

DRUGS (9)
  1. SAPHRIS [Suspect]
     Indication: SCHIZOPHRENIA
     Dosage: 10 MG, BID
     Route: 060
     Dates: start: 20130515
  2. SAPHRIS [Suspect]
     Dosage: 400 UNK, UNK
     Route: 060
  3. HYDROCHLOROTHIAZIDE [Concomitant]
  4. JANUVIA [Concomitant]
  5. ATORVASTATIN [Concomitant]
  6. METFORMIN [Concomitant]
  7. LEVOXYL [Concomitant]
  8. WELLBUTRIN [Concomitant]
  9. TEMAZEPAM [Concomitant]

REACTIONS (2)
  - Salivary hypersecretion [Recovered/Resolved]
  - Dyskinesia [Recovered/Resolved]
